FAERS Safety Report 5225492-X (Version None)
Quarter: 2007Q1

REPORT INFORMATION
  Report Type: 
  Country: None (occurrence: None)
  Receive Date: 20061201
  Receipt Date: 20060824
  Transmission Date: 20070707
  Serious: No
  Sender: FDA-Public Use
  Company Number: US200608005324

PATIENT
  Sex: Female

DRUGS (1)
  1. CYMBALTA [Suspect]
     Dosage: ORAL
     Route: 048

REACTIONS (2)
  - HALLUCINATION, AUDITORY [None]
  - PSYCHOMOTOR HYPERACTIVITY [None]
